FAERS Safety Report 5872983-4 (Version None)
Quarter: 2008Q3

REPORT INFORMATION
  Report Type: 
  Country: None (occurrence: None)
  Receive Date: 20080905
  Receipt Date: 20080827
  Transmission Date: 20090109
  Serious: Yes (Other)
  Sender: FDA-Public Use
  Company Number: FR-PFIZER INC-2008072146

PATIENT
  Sex: Female

DRUGS (2)
  1. CELEBREX [Suspect]
  2. INDAPAMIDE [Concomitant]

REACTIONS (3)
  - ANAEMIA [None]
  - FATIGUE [None]
  - NEUTROPENIA [None]
